FAERS Safety Report 6785869-8 (Version None)
Quarter: 2010Q2

REPORT INFORMATION
  Report Type: 
  Country: None (occurrence: None)
  Receive Date: 20100621
  Receipt Date: 20100621
  Transmission Date: 20101027
  Serious: Yes (Life-Threatening, Hospitalization)
  Sender: FDA-Public Use
  Company Number: None

PATIENT
  Age: 39 Year
  Sex: Male
  Weight: 76.6579 kg

DRUGS (1)
  1. RITE AID TRANSDERMAL NICOTINE SYSTEM, STEP ONE [Suspect]
     Indication: SMOKING CESSATION THERAPY
     Dosage: 21 MG PATCH
     Dates: start: 20100519

REACTIONS (3)
  - CHEST DISCOMFORT [None]
  - CHEST PAIN [None]
  - DYSPNOEA [None]
